FAERS Safety Report 15371288 (Version 6)
Quarter: 2020Q2

REPORT INFORMATION
  Report Type: Report from Study
  Country: US (occurrence: US)
  Receive Date: 20180911
  Receipt Date: 20200610
  Transmission Date: 20200713
  Serious: Yes (Death, Hospitalization, Other)
  Sender: FDA-Public Use
  Company Number: US-SAKK-2018SA246510AA

PATIENT

DRUGS (3)
  1. FUROSEMIDE. [Suspect]
     Active Substance: FUROSEMIDE
     Indication: PLEURAL EFFUSION
  2. AGALSIDASE BETA [Suspect]
     Active Substance: AGALSIDASE BETA
     Indication: FABRY^S DISEASE
     Dosage: 65 MG, QOW
     Route: 042
     Dates: start: 20070228, end: 20200605
  3. OCREVUS [Concomitant]
     Active Substance: OCRELIZUMAB
     Indication: MULTIPLE SCLEROSIS
     Dosage: UNK
     Dates: start: 201712

REACTIONS (20)
  - Headache [Not Recovered/Not Resolved]
  - Heart valve calcification [Not Recovered/Not Resolved]
  - Renal disorder [Not Recovered/Not Resolved]
  - Coma [Unknown]
  - Brain natriuretic peptide increased [Not Recovered/Not Resolved]
  - White blood cells urine positive [Unknown]
  - Death [Fatal]
  - Pleural effusion [Recovering/Resolving]
  - Cardiac failure congestive [Not Recovered/Not Resolved]
  - Swelling [Not Recovered/Not Resolved]
  - Hospice care [Not Recovered/Not Resolved]
  - Cardiac hypertrophy [Not Recovered/Not Resolved]
  - Urinary tract infection [Not Recovered/Not Resolved]
  - Troponin increased [Unknown]
  - Respiratory disorder [Unknown]
  - Fractured coccyx [Not Recovered/Not Resolved]
  - Coccydynia [Not Recovered/Not Resolved]
  - Skin abrasion [Not Recovered/Not Resolved]
  - Dyspnoea [Not Recovered/Not Resolved]
  - Decubitus ulcer [Not Recovered/Not Resolved]

NARRATIVE: CASE EVENT DATE: 2018
